FAERS Safety Report 5222722-5 (Version None)
Quarter: 2007Q1

REPORT INFORMATION
  Report Type: 
  Country: None (occurrence: None)
  Receive Date: 20070129
  Receipt Date: 20061020
  Transmission Date: 20070707
  Serious: No
  Sender: FDA-Public Use
  Company Number: US-GLAXOSMITHKLINE-A0624383A

PATIENT
  Age: 65 Year
  Sex: Male

DRUGS (8)
  1. COMBIVIR [Suspect]
     Indication: HIV INFECTION
     Dosage: 2TAB PER DAY
     Route: 048
     Dates: start: 19990101
  2. LEXIVA [Concomitant]
  3. NORVIR [Concomitant]
  4. NORVASC [Concomitant]
  5. ENALAPRIL MALEATE [Concomitant]
  6. TRICOR [Concomitant]
  7. VICODIN [Concomitant]
  8. TEMAZEPAM [Concomitant]

REACTIONS (2)
  - CHILLS [None]
  - FEELING COLD [None]
